FAERS Safety Report 22234636 (Version 2)
Quarter: 2023Q2

REPORT INFORMATION
  Report Type: Spontaneous
  Country: DE (occurrence: DE)
  Receive Date: 20230420
  Receipt Date: 20230502
  Transmission Date: 20230721
  Serious: Yes (Death, Other)
  Sender: FDA-Public Use
  Company Number: None

PATIENT
  Age: 49 Year
  Sex: Male

DRUGS (1)
  1. LIBTAYO [Suspect]
     Active Substance: CEMIPLIMAB-RWLC
     Indication: Neoplasm malignant
     Dosage: 350 MG
     Route: 042
     Dates: start: 20230208, end: 20230208

REACTIONS (1)
  - Epidermolysis [Fatal]

NARRATIVE: CASE EVENT DATE: 20230221
